FAERS Safety Report 6937778-9 (Version None)
Quarter: 2010Q3

REPORT INFORMATION
  Report Type: 
  Country: None (occurrence: None)
  Receive Date: 20100823
  Receipt Date: 20100823
  Transmission Date: 20110219
  Serious: Yes (Life-Threatening)
  Sender: FDA-Public Use
  Company Number: None

PATIENT
  Sex: Male
  Weight: 98 kg

DRUGS (5)
  1. DAPTOMYCIN [Suspect]
     Indication: SUBACUTE ENDOCARDITIS
     Dosage: 600 MG Q24H IV
     Route: 042
     Dates: start: 20100702
  2. METHYLPREDNISOLONE [Concomitant]
  3. DAPTOMYCIN [Concomitant]
  4. ZOSYN [Concomitant]
  5. VANCOMYCIN [Concomitant]

REACTIONS (4)
  - EOSINOPHIL COUNT INCREASED [None]
  - LOWER RESPIRATORY TRACT INFLAMMATION [None]
  - LUNG INFILTRATION [None]
  - RESPIRATORY DISTRESS [None]
